FAERS Safety Report 7436130-X (Version None)
Quarter: 2011Q2

REPORT INFORMATION
  Report Type: 
  Country: None (occurrence: None)
  Receive Date: 20110425
  Receipt Date: 20090324
  Transmission Date: 20111010
  Serious: Yes (Other)
  Sender: FDA-Public Use
  Company Number: DE-GENENTECH-316969

PATIENT
  Sex: Female

DRUGS (1)
  1. LUCENTIS [Suspect]
     Indication: MACULAR DEGENERATION
     Route: 031

REACTIONS (8)
  - MALAISE [None]
  - VISUAL IMPAIRMENT [None]
  - SLEEP APNOEA SYNDROME [None]
  - GENERAL PHYSICAL HEALTH DETERIORATION [None]
  - DEAFNESS [None]
  - INTERVERTEBRAL DISC PROTRUSION [None]
  - MUSCULOSKELETAL DISCOMFORT [None]
  - GOUT [None]
